FAERS Safety Report 7630888-2 (Version None)
Quarter: 2011Q3

REPORT INFORMATION
  Report Type: 
  Country: None (occurrence: None)
  Receive Date: 20110724
  Receipt Date: 20110711
  Transmission Date: 20111222
  Serious: Yes (Hospitalization)
  Sender: FDA-Public Use
  Company Number: DE-MYLANLABS-2011S1014371

PATIENT
  Age: 58 Year
  Sex: Male

DRUGS (16)
  1. DIAZEPAM [Concomitant]
     Dosage: DAILY DOSE: 5 MG MILLIGRAM(S) EVERY DAY
     Route: 048
     Dates: start: 20100716, end: 20100719
  2. SERTRALINE HYDROCHLORIDE [Suspect]
     Dosage: DAILY DOSE: 200 MG MILLIGRAM(S) EVERY DAY
     Route: 048
     Dates: start: 20100713, end: 20100804
  3. DIAZEPAM [Concomitant]
     Dosage: DAILY DOSE: 2.5 MG MILLIGRAM(S) EVERY DAY
     Route: 048
     Dates: start: 20100720, end: 20100804
  4. AKINETON [Suspect]
     Dosage: DAILY DOSE: 4 MG MILLIGRAM(S) EVERY DAY
     Route: 048
     Dates: start: 20100710
  5. SERTRALINE HYDROCHLORIDE [Suspect]
     Dosage: DAILY DOSE: 150 MG MILLIGRAM(S) EVERY DAY
     Route: 048
     Dates: start: 20100708, end: 20100712
  6. SEROQUEL [Suspect]
     Indication: PRODUCT USED FOR UNKNOWN INDICATION
     Dosage: 200-600MG/D
     Route: 048
     Dates: start: 20100522, end: 20100602
  7. SEROQUEL [Suspect]
     Dosage: DAILY DOSE: 800 MG MILLIGRAM(S) EVERY DAY
     Route: 048
     Dates: start: 20100628, end: 20100804
  8. AKINETON [Suspect]
     Indication: PRODUCT USED FOR UNKNOWN INDICATION
     Dosage: DAILY DOSE: 2 MG MILLIGRAM(S) EVERY DAY
     Route: 048
     Dates: start: 20100625, end: 20100709
  9. SERTRALINE HYDROCHLORIDE [Suspect]
     Dosage: DAILY DOSE: 100 MG MILLIGRAM(S) EVERY DAY
     Route: 048
     Dates: start: 20100609, end: 20100707
  10. SERTRALINE HYDROCHLORIDE [Suspect]
     Dosage: DAILY DOSE: 100 MG MILLIGRAM(S) EVERY DAY
     Route: 048
     Dates: start: 20100807
  11. SEROQUEL [Suspect]
     Dosage: 600-100MG/D
     Route: 048
     Dates: start: 20100805, end: 20100811
  12. SEROQUEL [Suspect]
     Dosage: 400-600MG/D
     Route: 048
     Dates: start: 20100622, end: 20100627
  13. SERTRALINE HYDROCHLORIDE [Suspect]
     Indication: PRODUCT USED FOR UNKNOWN INDICATION
     Dosage: DAILY DOSE: 50 MG MILLIGRAM(S) EVERY DAY
     Route: 048
     Dates: start: 20100527, end: 20100608
  14. SERTRALINE HYDROCHLORIDE [Suspect]
     Dosage: DAILY DOSE: 150 MG MILLIGRAM(S) EVERY DAY
     Route: 048
     Dates: start: 20100805, end: 20100806
  15. SEROQUEL [Suspect]
     Dosage: DAILY DOSE: 300 MG MILLIGRAM(S) EVERY DAY
     Route: 048
     Dates: start: 20100602, end: 20100622
  16. DIAZEPAM [Concomitant]
     Indication: PRODUCT USED FOR UNKNOWN INDICATION
     Dosage: DAILY DOSE: 10 MG MILLIGRAM(S) EVERY DAY
     Route: 048
     Dates: start: 20100624, end: 20100715

REACTIONS (1)
  - DELIRIUM [None]
